FAERS Safety Report 9359315 (Version 1)
Quarter: 2013Q2

REPORT INFORMATION
  Report Type: Spontaneous
  Country: CN (occurrence: CN)
  Receive Date: 20130620
  Receipt Date: 20130620
  Transmission Date: 20140414
  Serious: Yes (Hospitalization)
  Sender: FDA-Public Use
  Company Number: PHHY2013CN062073

PATIENT
  Age: 27 Year
  Sex: Male

DRUGS (4)
  1. QUETIAPINE [Suspect]
     Indication: MAJOR DEPRESSION
     Dosage: 100 MG, QD
     Dates: start: 200412
  2. QUETIAPINE [Suspect]
     Dosage: 200 MG, QD
     Dates: start: 200802
  3. OLANZAPINE [Suspect]
     Indication: DEPRESSION
     Dosage: 10 MG, QD
  4. OLANZAPINE [Suspect]
     Dosage: 20 UNK, UNK

REACTIONS (5)
  - Tubulointerstitial nephritis [Unknown]
  - Proteinuria [Unknown]
  - Oedema peripheral [Recovered/Resolved]
  - Dizziness [Unknown]
  - Sedation [Unknown]
